FAERS Safety Report 12672354 (Version 2)
Quarter: 2016Q4

REPORT INFORMATION
  Report Type: Spontaneous
  Country: US (occurrence: US)
  Receive Date: 20160822
  Receipt Date: 20161004
  Transmission Date: 20170207
  Serious: No
  Sender: FDA-Public Use
  Company Number: US-JNJFOC-20160814187

PATIENT
  Sex: Male

DRUGS (2)
  1. MENS ROGAINE [Suspect]
     Active Substance: MINOXIDIL
     Route: 061
  2. MENS ROGAINE [Suspect]
     Active Substance: MINOXIDIL
     Indication: ALOPECIA
     Dosage: 3 DROPS; NOT MEASURED
     Route: 061

REACTIONS (4)
  - Skin irritation [Recovering/Resolving]
  - Incorrect dose administered [Recovering/Resolving]
  - Dermatitis [Recovering/Resolving]
  - Pruritus [Recovering/Resolving]
